FAERS Safety Report 9424570 (Version 12)
Quarter: 2017Q1

REPORT INFORMATION
  Report Type: Report from Study
  Country: CA (occurrence: CA)
  Receive Date: 20130729
  Receipt Date: 20170309
  Transmission Date: 20170429
  Serious: Yes (Hospitalization, Other)
  Sender: FDA-Public Use
  Company Number: CA-ROCHE-1253822

PATIENT
  Age: 63 Year
  Sex: Male
  Weight: 119.4 kg

DRUGS (13)
  1. SULFASALAZINE. [Concomitant]
     Active Substance: SULFASALAZINE
  2. METHYLPREDNISOLONE. [Concomitant]
     Active Substance: METHYLPREDNISOLONE
     Indication: PREMEDICATION
     Route: 042
     Dates: start: 20120109, end: 20161103
  3. HYDROXYCHLOROQUINE [Concomitant]
     Active Substance: HYDROXYCHLOROQUINE
  4. HYDROCHLOROTHIAZIDE. [Concomitant]
     Active Substance: HYDROCHLOROTHIAZIDE
  5. DIPHENHYDRAMINE HCL [Concomitant]
     Active Substance: DIPHENHYDRAMINE HYDROCHLORIDE
     Indication: PREMEDICATION
     Route: 048
     Dates: start: 20120716, end: 20161103
  6. ZOPICLONE [Concomitant]
     Active Substance: ZOPICLONE
  7. VITAMIN C [Concomitant]
     Active Substance: ASCORBIC ACID
  8. PREDNISONE. [Concomitant]
     Active Substance: PREDNISONE
  9. RITUXAN [Suspect]
     Active Substance: RITUXIMAB
     Indication: JUVENILE IDIOPATHIC ARTHRITIS
     Dosage: PREVIOUS DOSE WAS ON: 19/FEB/2013 AND 24/JUN/2015
     Route: 042
     Dates: start: 20120109, end: 20161103
  10. ACETAMINOPHEN. [Concomitant]
     Active Substance: ACETAMINOPHEN
     Indication: PREMEDICATION
     Route: 048
     Dates: start: 20120109, end: 20161103
  11. LOSEC [Concomitant]
     Active Substance: OMEPRAZOLE
  12. MAVIK [Concomitant]
     Active Substance: TRANDOLAPRIL
  13. OXYCOCET [Concomitant]
     Active Substance: ACETAMINOPHEN\OXYCODONE HYDROCHLORIDE

REACTIONS (14)
  - Cough [Unknown]
  - Herpes zoster [Recovered/Resolved]
  - Osteoarthritis [Not Recovered/Not Resolved]
  - Ill-defined disorder [Not Recovered/Not Resolved]
  - Streptococcal sepsis [Unknown]
  - Peripheral nerve injury [Not Recovered/Not Resolved]
  - Weight increased [Unknown]
  - Vein disorder [Unknown]
  - Off label use [Unknown]
  - Blood pressure fluctuation [Unknown]
  - Pain [Not Recovered/Not Resolved]
  - Weight decreased [Unknown]
  - Peripheral swelling [Not Recovered/Not Resolved]
  - Blood pressure increased [Unknown]

NARRATIVE: CASE EVENT DATE: 201206
